FAERS Safety Report 11719486 (Version 1)
Quarter: 2015Q4

REPORT INFORMATION
  Report Type: Spontaneous
  Country: US (occurrence: None)
  Receive Date: 20151109
  Receipt Date: 20151109
  Transmission Date: 20160304
  Serious: No
  Sender: FDA-Public Use
  Company Number: None

PATIENT
  Age: 14 Year
  Sex: Female
  Weight: 97.52 kg

DRUGS (1)
  1. ZUBSOLV [Suspect]
     Active Substance: BUPRENORPHINE HYDROCHLORIDE\NALOXONE HYDROCHLORIDE
     Indication: DRUG DEPENDENCE
     Dosage: TAKEN UNDER TONGUE
     Dates: start: 20150814, end: 20151106

REACTIONS (10)
  - Wheezing [None]
  - Sleep apnoea syndrome [None]
  - Asthenia [None]
  - Dyspnoea [None]
  - Faeces hard [None]
  - Abnormal dreams [None]
  - Cough [None]
  - Sexual dysfunction [None]
  - Peripheral swelling [None]
  - Weight increased [None]

NARRATIVE: CASE EVENT DATE: 20150901
